FAERS Safety Report 5996936-0 (Version None)
Quarter: 2008Q4

REPORT INFORMATION
  Report Type: 
  Country: None (occurrence: None)
  Receive Date: 20081212
  Receipt Date: 20081029
  Transmission Date: 20090506
  Serious: No
  Sender: FDA-Public Use
  Company Number: US-ABBOTT-08P-163-0484551-00

PATIENT
  Sex: Male
  Weight: 77.18 kg

DRUGS (6)
  1. HUMIRA [Suspect]
     Indication: CROHN'S DISEASE
     Route: 058
     Dates: start: 20080901, end: 20080901
  2. HUMIRA [Suspect]
     Route: 058
  3. HUMIRA [Suspect]
     Route: 058
     Dates: start: 20081022
  4. DONATEL EXTEND TABS [Concomitant]
     Indication: CROHN'S DISEASE
     Route: 048
  5. DONATEL EXTEND TABS [Concomitant]
     Indication: MUSCLE SPASMS
  6. ESCITALOPRAM OXALATE [Concomitant]
     Indication: ANXIETY
     Route: 048

REACTIONS (2)
  - HEADACHE [None]
  - RASH [None]
